FAERS Safety Report 22232104 (Version 2)
Quarter: 2024Q2

REPORT INFORMATION
  Report Type: Spontaneous
  Country: US (occurrence: US)
  Receive Date: 20230420
  Receipt Date: 20240426
  Transmission Date: 20240716
  Serious: No
  Sender: FDA-Public Use
  Company Number: US-PTx-2022000106

PATIENT
  Sex: Male

DRUGS (10)
  1. LEUKINE [Suspect]
     Active Substance: SARGRAMOSTIM
     Indication: Prostate cancer
     Dosage: 250MCG RECONSTITUTED WITH 1 ML OF STERILE WATER MON, WED AND FRIDAY
     Route: 058
     Dates: start: 20220923
  2. LEUKINE [Suspect]
     Active Substance: SARGRAMOSTIM
     Indication: Prostate cancer
     Dosage: 500 MCG THREE TIMES A WEEK
     Route: 058
  3. LEUKINE [Suspect]
     Active Substance: SARGRAMOSTIM
     Indication: Prostate cancer
     Dosage: 450 MCG 12 DAYS ON AND 16 DAYS OFF
     Route: 058
  4. ROSUVASTATIN [Concomitant]
     Active Substance: ROSUVASTATIN
     Indication: Product used for unknown indication
     Dosage: 5 MG DAILY
     Route: 065
  5. DUTASTERIDE [Concomitant]
     Active Substance: DUTASTERIDE
     Indication: Product used for unknown indication
     Dosage: 0.5 MG DAILY
     Route: 065
  6. VITAMINS [Concomitant]
     Active Substance: VITAMINS
     Indication: Product used for unknown indication
     Dosage: UNK
     Route: 065
  7. TYLENOL [Concomitant]
     Active Substance: ACETAMINOPHEN
     Indication: Product used for unknown indication
     Dosage: UNK
     Route: 065
  8. ADVIL [Concomitant]
     Active Substance: IBUPROFEN
     Indication: Product used for unknown indication
     Dosage: UNK
     Route: 065
  9. BENADRYL [Concomitant]
     Active Substance: DIPHENHYDRAMINE HYDROCHLORIDE
     Indication: Product used for unknown indication
     Dosage: 25 MG
     Route: 065
  10. MELATONIN [Concomitant]
     Active Substance: MELATONIN
     Indication: Product used for unknown indication
     Dosage: 10 MG AT NIGHT
     Route: 065

REACTIONS (13)
  - Injection site hypersensitivity [Unknown]
  - Injection site erythema [Unknown]
  - Cough [Unknown]
  - Respiratory tract infection [Unknown]
  - Prostatic specific antigen increased [Unknown]
  - White blood cell count decreased [Unknown]
  - Medication error [Unknown]
  - Injection site swelling [Unknown]
  - Injection site pruritus [Unknown]
  - Product solubility abnormal [Unknown]
  - Product packaging issue [Unknown]
  - Product preparation error [Unknown]
  - Product label issue [Unknown]
